FAERS Safety Report 7913508-9 (Version None)
Quarter: 2011Q4

REPORT INFORMATION
  Report Type: 
  Country: None (occurrence: None)
  Receive Date: 20111110
  Receipt Date: 20111027
  Transmission Date: 20120403
  Serious: Yes (Other)
  Sender: FDA-Public Use
  Company Number: 1000024509

PATIENT
  Age: 73 Year
  Sex: Female

DRUGS (20)
  1. UNISIA HD(CANDESARTAN CILEXETIL, AMLODIPINE BESILATE)(CANDESARTAN CILE [Concomitant]
  2. ALDOMET [Concomitant]
  3. STAYELA (IMIDAFENACIN) ( IMIDAFENAC IN) [Concomitant]
  4. CELECOX (CELECOXIB) (CELECOXIB) [Concomitant]
  5. MEMANTINE HYDROCHLORIDE [Suspect]
     Indication: DEMENTIA WITH LEWY BODIES
     Dosage: 5 MG (5 MG,1 IN 1 D),ORAL, 7.5 MG (7.5 MG, 1 IN 1 D),ORAL
     Route: 048
     Dates: start: 20110708, end: 20110714
  6. MEMANTINE HYDROCHLORIDE [Suspect]
     Indication: DEMENTIA WITH LEWY BODIES
     Dosage: 5 MG (5 MG,1 IN 1 D),ORAL, 7.5 MG (7.5 MG, 1 IN 1 D),ORAL
     Route: 048
     Dates: start: 20110715, end: 20110721
  7. MEMANTINE HYDROCHLORIDE [Suspect]
     Indication: DEMENTIA WITH LEWY BODIES
     Dosage: 5 MG (5 MG,1 IN 1 D),ORAL, 7.5 MG (7.5 MG, 1 IN 1 D),ORAL
     Route: 048
     Dates: start: 20110701, end: 20110707
  8. MEMANTINE HYDROCHLORIDE [Suspect]
     Indication: DEMENTIA WITH LEWY BODIES
     Dosage: 10 MG (10 MG, 1 IN 1 D),ORAL
     Route: 048
     Dates: start: 20110722, end: 20110818
  9. EPADEL (ETHYL ICOSAPENTATE)(ETHYL ICOSAPENTATE) [Concomitant]
  10. NORVASC [Concomitant]
  11. MEMANTINE HYDROCHLORIDE [Suspect]
     Indication: DEMENTIA WITH LEWY BODIES
     Dosage: 2.5 MG( 2.5 MG,1 IN 1 D),ORAL
     Route: 048
     Dates: start: 20110915
  12. YOKUKAN-SAN (HERBAL EXTRACT NOS)(HERBAL EXTRACT NOS) [Concomitant]
  13. STOBRUN (TRIHEXYPHENIDYL HYDROCHLORIDE)(TRIHEXYPHENIDYL  HYDROCHLORIDE [Concomitant]
  14. LEPRINTON (LEVODOPA, CARBIDOPA)(LEVODOPA, CARBIDOPA) [Concomitant]
  15. ALOSENN (SENNA ALEXANDRINA) ( SENNA ALEXANDRINA) [Concomitant]
  16. KAMA (MAGNESIUM OXIDE) (MAGNESIUM OXIDE) [Concomitant]
  17. ROHYPNOL (FLUNITRAZEPAM) ( FLUNITRAZEPAM) [Concomitant]
  18. ARICEPT [Concomitant]
  19. ALMARL (AROTINOLOL HYDROCHLORIDE)(AROTINOLOL HYDROCHLORIDE) [Concomitant]
  20. RASILEZ (ALISKIREN FUMARATE) (ALISKIREN FUMARATE) [Concomitant]

REACTIONS (5)
  - MASKED FACIES [None]
  - TREMOR [None]
  - SPEECH DISORDER [None]
  - HALLUCINATION, VISUAL [None]
  - GAIT DISTURBANCE [None]
